FAERS Safety Report 13807867 (Version 1)
Quarter: 2017Q3

REPORT INFORMATION
  Report Type: Spontaneous
  Country: US (occurrence: US)
  Receive Date: 20170728
  Receipt Date: 20170728
  Transmission Date: 20171127
  Serious: No
  Sender: FDA-Public Use
  Company Number: US-DEPOMED, INC.-US-2016DEP009976

PATIENT

DRUGS (1)
  1. LAZANDA [Suspect]
     Active Substance: FENTANYL CITRATE
     Indication: BACK PAIN
     Dosage: 200 ?G, QID (1 SPRAY PER NOSTRIL EVERY 6HOURS FOR PAIN)
     Route: 045
     Dates: start: 201512

REACTIONS (2)
  - Product packaging quantity issue [Unknown]
  - Product use in unapproved indication [Not Recovered/Not Resolved]

NARRATIVE: CASE EVENT DATE: 201512
